FAERS Safety Report 18122527 (Version 1)
Quarter: 2020Q3

REPORT INFORMATION
  Report Type: Spontaneous
  Country: RU (occurrence: RU)
  Receive Date: 20200807
  Receipt Date: 20200807
  Transmission Date: 20201103
  Serious: Yes (Other)
  Sender: FDA-Public Use
  Company Number: NVSC2020RU206645

PATIENT
  Age: 61 Year
  Sex: Female

DRUGS (5)
  1. MOMETASONE FUROATE. [Suspect]
     Active Substance: MOMETASONE FUROATE
     Indication: ASTHMA
     Dosage: 100 UG, QD
     Route: 006
  2. BUDESONIDE,FORMOTEROL [Suspect]
     Active Substance: BUDESONIDE\FORMOTEROL
     Indication: ASTHMA
     Dosage: 400/12MCG (CUMULATIVE DAILY DOSE 1600 MCG) (2 DOSE 2 TIMES PER DAY)
     Route: 055
  3. MONTELUKAST [Suspect]
     Active Substance: MONTELUKAST SODIUM
     Indication: ASTHMA
     Dosage: 10 MG, QD
     Route: 065
  4. TIOTROPIUM BROMIDE [Suspect]
     Active Substance: TIOTROPIUM BROMIDE
     Indication: ASTHMA
     Dosage: 2.5 MCG/ML, BID
     Route: 065
  5. SALBUTAMOL [Suspect]
     Active Substance: ALBUTEROL
     Indication: ASTHMA
     Dosage: AS REQUIRED
     Route: 065

REACTIONS (5)
  - Eosinophilia [Recovering/Resolving]
  - Dyspnoea [Recovering/Resolving]
  - Respiratory distress [Recovering/Resolving]
  - Chest discomfort [Recovering/Resolving]
  - Drug ineffective [Unknown]
